FAERS Safety Report 14199821 (Version 3)
Quarter: 2018Q1

REPORT INFORMATION
  Report Type: Report from Study
  Country: FR (occurrence: FR)
  Receive Date: 20171117
  Receipt Date: 20180306
  Transmission Date: 20180508
  Serious: Yes (Death, Hospitalization)
  Sender: FDA-Public Use
  Company Number: FR-JNJFOC-20171119112

PATIENT
  Age: 58 Year
  Sex: Male
  Weight: 117 kg

DRUGS (2)
  1. FONDAPARINUX [Concomitant]
     Active Substance: FONDAPARINUX
     Route: 065
     Dates: start: 20171030
  2. RIVAROXABAN [Suspect]
     Active Substance: RIVAROXABAN
     Indication: EMBOLISM VENOUS
     Route: 048
     Dates: start: 20171031, end: 20171107

REACTIONS (3)
  - Shock [Fatal]
  - General physical health deterioration [Not Recovered/Not Resolved]
  - Rectal haemorrhage [Not Recovered/Not Resolved]

NARRATIVE: CASE EVENT DATE: 20171107
